FAERS Safety Report 21138935 (Version 1)
Quarter: 2022Q3

REPORT INFORMATION
  Report Type: Spontaneous
  Country: US (occurrence: US)
  Receive Date: 20220727
  Receipt Date: 20220727
  Transmission Date: 20221026
  Serious: No
  Sender: FDA-Public Use
  Company Number: US-Blueprint Medicines Corporation-287

PATIENT
  Sex: Male

DRUGS (1)
  1. AYVAKIT [Suspect]
     Active Substance: AVAPRITINIB
     Indication: Gastrointestinal stromal tumour
     Route: 048
     Dates: start: 20220522

REACTIONS (10)
  - Liver disorder [Unknown]
  - Liver function test increased [Recovering/Resolving]
  - Restlessness [Unknown]
  - Swollen tongue [Unknown]
  - Hair colour changes [Unknown]
  - Dyspepsia [Unknown]
  - Swelling face [Unknown]
  - Periorbital swelling [Unknown]
  - Swelling [Unknown]
  - Product dose omission issue [Unknown]
